FAERS Safety Report 10218955 (Version 1)
Quarter: 2014Q2

REPORT INFORMATION
  Report Type: Spontaneous
  Country: JP (occurrence: JP)
  Receive Date: 20140605
  Receipt Date: 20140605
  Transmission Date: 20141212
  Serious: Yes (Hospitalization)
  Sender: FDA-Public Use
  Company Number: JP-ASTRAZENECA-2014SE37113

PATIENT
  Age: 48 Year
  Sex: Male
  Weight: 84 kg

DRUGS (8)
  1. CRESTOR [Suspect]
     Route: 048
     Dates: start: 20140315, end: 20140316
  2. NORVASC [Concomitant]
     Route: 048
  3. BENAZEP [Concomitant]
     Route: 048
  4. ATORVASTATIN [Concomitant]
     Route: 048
  5. AMARYL [Concomitant]
     Route: 048
  6. VOGLIBOSE OD [Concomitant]
     Route: 048
  7. GLACTIV [Concomitant]
     Route: 048
  8. METGLUCO [Concomitant]
     Route: 048

REACTIONS (2)
  - Generalised erythema [Recovering/Resolving]
  - Urticaria [Recovering/Resolving]
